FAERS Safety Report 18203780 (Version 2)
Quarter: 2020Q4

REPORT INFORMATION
  Report Type: Spontaneous
  Country: US (occurrence: US)
  Receive Date: 20200827
  Receipt Date: 20201104
  Transmission Date: 20210113
  Serious: Yes (Death, Other)
  Sender: FDA-Public Use
  Company Number: US-PURDUE PHARMA-USA-2020-0157154

PATIENT
  Age: 35 Year
  Sex: Male

DRUGS (3)
  1. HEROIN [Suspect]
     Active Substance: DIAMORPHINE
     Indication: PRODUCT USED FOR UNKNOWN INDICATION
     Dosage: UNK
     Route: 065
  2. ALCOHOL. [Suspect]
     Active Substance: ALCOHOL
     Indication: PRODUCT USED FOR UNKNOWN INDICATION
     Dosage: UNK
     Route: 065
  3. OXYCONTIN [Suspect]
     Active Substance: OXYCODONE HYDROCHLORIDE
     Indication: PAIN
     Dosage: UNK, SNIFFING
     Route: 065
     Dates: end: 20141026

REACTIONS (10)
  - Accidental death [Fatal]
  - Behaviour disorder [Recovered/Resolved]
  - Personality disorder [Unknown]
  - Road traffic accident [Unknown]
  - Emotional distress [Unknown]
  - Drug dependence [Not Recovered/Not Resolved]
  - Incorrect route of product administration [Unknown]
  - Toxicity to various agents [Fatal]
  - Overdose [Unknown]
  - Anxiety [Unknown]

NARRATIVE: CASE EVENT DATE: 20141026
